FAERS Safety Report 5189910-8 (Version None)
Quarter: 2006Q4

REPORT INFORMATION
  Report Type: 
  Country: None (occurrence: None)
  Receive Date: 20061218
  Receipt Date: 20061204
  Transmission Date: 20070319
  Serious: Yes (Hospitalization)
  Sender: FDA-Public Use
  Company Number: GXKR2006GB07871

PATIENT
  Age: 55 Year
  Sex: Male
  Weight: 80 kg

DRUGS (2)
  1. ASPIRIN [Suspect]
     Dosage: 75 MG, ORAL
     Route: 048
     Dates: start: 20060905
  2. ATORVASTATIN CALCIUM [Concomitant]

REACTIONS (1)
  - DUODENAL ULCER HAEMORRHAGE [None]
